FAERS Safety Report 5835248-2 (Version None)
Quarter: 2008Q3

REPORT INFORMATION
  Report Type: 
  Country: None (occurrence: None)
  Receive Date: 20080806
  Receipt Date: 20080804
  Transmission Date: 20090109
  Serious: Yes (Hospitalization)
  Sender: FDA-Public Use
  Company Number: US-BAYER-200822110NA

PATIENT
  Age: 24 Year
  Sex: Male

DRUGS (1)
  1. AVELOX [Suspect]
     Indication: ORAL INFECTION
     Route: 048

REACTIONS (1)
  - DEEP VEIN THROMBOSIS [None]
